FAERS Safety Report 4955274-5 (Version None)
Quarter: 2006Q1

REPORT INFORMATION
  Report Type: 
  Country: None (occurrence: None)
  Receive Date: 20060322
  Receipt Date: 20060310
  Transmission Date: 20060701
  Serious: Yes (Other)
  Sender: FDA-Public Use
  Company Number: 2006-BP-02772RO

PATIENT
  Age: 15 Year
  Sex: Male

DRUGS (10)
  1. METHOTREXATE [Suspect]
     Indication: ACUTE LYMPHOCYTIC LEUKAEMIA
     Dosage: 5000 MG/M2 X FOUR COURSES (NR), IT
     Route: 038
  2. MERCAPTOPURINE [Suspect]
     Indication: ACUTE LYMPHOCYTIC LEUKAEMIA
  3. VINCRISTINE [Concomitant]
  4. PREDNISONE [Concomitant]
  5. DAUNORUBICIN HCL [Concomitant]
  6. CYTARABINE [Concomitant]
  7. ELSPAR [Concomitant]
  8. MERCAPTOPURINE [Concomitant]
  9. HYDROCORTISONE [Concomitant]
  10. CYTARABINE [Concomitant]

REACTIONS (4)
  - BLOOD OSMOLARITY INCREASED [None]
  - HYPOTENSION [None]
  - POLYURIA [None]
  - SEPSIS [None]
